FAERS Safety Report 23074952 (Version 3)
Quarter: 2023Q4

REPORT INFORMATION
  Report Type: Report from Study
  Country: CN (occurrence: CN)
  Receive Date: 20231017
  Receipt Date: 20231107
  Transmission Date: 20240109
  Serious: Yes (Hospitalization)
  Sender: FDA-Public Use
  Company Number: CN-Eisai Medical Research-EC-2023-137126

PATIENT
  Age: 72 Year
  Sex: Male
  Weight: 48.0 kg

DRUGS (9)
  1. LENVATINIB [Suspect]
     Active Substance: LENVATINIB
     Indication: Clear cell renal cell carcinoma
     Route: 048
     Dates: start: 20230203, end: 20230222
  2. LENVATINIB [Suspect]
     Active Substance: LENVATINIB
     Dosage: STARTING DOSE AT 20 MG, FLUCTUATED DOSAGE
     Route: 048
     Dates: start: 20230223, end: 20230529
  3. PEMBROLIZUMAB [Suspect]
     Active Substance: PEMBROLIZUMAB
     Indication: Clear cell renal cell carcinoma
     Route: 042
     Dates: start: 20230203, end: 20230203
  4. PEMBROLIZUMAB [Suspect]
     Active Substance: PEMBROLIZUMAB
     Route: 042
     Dates: start: 20230331, end: 20230511
  5. BELZUTIFAN [Suspect]
     Active Substance: BELZUTIFAN
     Indication: Clear cell renal cell carcinoma
     Route: 048
     Dates: start: 20230203, end: 20230315
  6. BELZUTIFAN [Suspect]
     Active Substance: BELZUTIFAN
     Dosage: STARTING DOSE AT 80 MG, FLUCTUATED DOSAGE
     Route: 048
     Dates: start: 20230331, end: 20230427
  7. NIFEDIPINE [Concomitant]
     Active Substance: NIFEDIPINE
     Dates: start: 202109, end: 20230423
  8. HYDROCHLOROTHIAZIDE\LOSARTAN POTASSIUM [Concomitant]
     Active Substance: HYDROCHLOROTHIAZIDE\LOSARTAN POTASSIUM
     Dates: start: 202109, end: 20230423
  9. IBUPROFEN [Concomitant]
     Active Substance: IBUPROFEN
     Dates: start: 202211

REACTIONS (2)
  - Pancreatitis [Not Recovered/Not Resolved]
  - Anaemia [Recovered/Resolved]

NARRATIVE: CASE EVENT DATE: 20230210
